FAERS Safety Report 20709158 (Version 3)
Quarter: 2022Q2

REPORT INFORMATION
  Report Type: Report from Study
  Country: JP (occurrence: JP)
  Receive Date: 20220414
  Receipt Date: 20220526
  Transmission Date: 20220720
  Serious: Yes (Other)
  Sender: FDA-Public Use
  Company Number: JP-TAKEDA-2022TJP037035

PATIENT
  Age: 87 Year
  Sex: Male
  Weight: 58.8 kg

DRUGS (1)
  1. CABOMETYX [Suspect]
     Active Substance: CABOZANTINIB S-MALATE
     Indication: Renal cell carcinoma stage IV
     Dosage: 60 MG, QD
     Route: 048
     Dates: start: 20220105, end: 20220302

REACTIONS (3)
  - Oedema peripheral [Recovering/Resolving]
  - Anaemia [Recovering/Resolving]
  - Proteinuria [Not Recovered/Not Resolved]

NARRATIVE: CASE EVENT DATE: 20220302
